FAERS Safety Report 23171938 (Version 1)
Quarter: 2023Q4

REPORT INFORMATION
  Report Type: Spontaneous
  Country: JP (occurrence: None)
  Receive Date: 20231110
  Receipt Date: 20231110
  Transmission Date: 20240109
  Serious: Yes (Life-Threatening, Hospitalization)
  Sender: FDA-Public Use
  Company Number: 2023A254988

PATIENT
  Age: 75 Year
  Sex: Male

DRUGS (3)
  1. IMJUDO [Suspect]
     Active Substance: TREMELIMUMAB\TREMELIMUMAB-ACTL
     Indication: Hepatocellular carcinoma
     Dosage: DOSE UNKNOWN
     Route: 041
     Dates: start: 20230826, end: 20230826
  2. IMFINZI [Suspect]
     Active Substance: DURVALUMAB
     Indication: Hepatocellular carcinoma
     Dosage: DOSE UNKNOWN
     Route: 041
     Dates: start: 20230826, end: 20230826
  3. HYDROCORTISONE [Concomitant]
     Active Substance: HYDROCORTISONE
     Indication: Adrenal insufficiency
     Route: 048
     Dates: start: 20220524, end: 202309

REACTIONS (7)
  - Diarrhoea [Unknown]
  - Movement disorder [Unknown]
  - Fluid intake reduced [Unknown]
  - Malaise [Unknown]
  - Pyrexia [Unknown]
  - Vomiting [Unknown]
  - Oedema [Unknown]

NARRATIVE: CASE EVENT DATE: 20230909
